FAERS Safety Report 15776647 (Version 1)
Quarter: 2018Q4

REPORT INFORMATION
  Report Type: Spontaneous
  Country: US (occurrence: US)
  Receive Date: 20181231
  Receipt Date: 20181231
  Transmission Date: 20190205
  Serious: No
  Sender: FDA-Public Use
  Company Number: US-PFIZER INC-2018534924

PATIENT
  Age: 67 Year
  Sex: Male

DRUGS (6)
  1. SULINDAC. [Suspect]
     Active Substance: SULINDAC
     Dosage: UNK
  2. TOLMETIN [Suspect]
     Active Substance: TOLMETIN
     Dosage: UNK
  3. TOLECTIN [Suspect]
     Active Substance: TOLMETIN SODIUM
     Dosage: UNK
  4. METOCLOPRAMIDE HCL [Suspect]
     Active Substance: METOCLOPRAMIDE HYDROCHLORIDE
     Dosage: UNK
  5. CLINORIL [Suspect]
     Active Substance: SULINDAC
     Dosage: UNK
  6. REGLAN [Suspect]
     Active Substance: METOCLOPRAMIDE HYDROCHLORIDE
     Dosage: UNK

REACTIONS (1)
  - Drug hypersensitivity [Unknown]
